FAERS Safety Report 6504939-2 (Version None)
Quarter: 2009Q4

REPORT INFORMATION
  Report Type: 
  Country: None (occurrence: None)
  Receive Date: 20091201
  Receipt Date: 20090730
  Transmission Date: 20100525
  Serious: Yes (Hospitalization, Other)
  Sender: FDA-Public Use
  Company Number: 2008-181319-NL

PATIENT
  Age: 47 Year
  Sex: Female
  Weight: 73.5 kg

DRUGS (4)
  1. NUVARING [Suspect]
     Indication: CONTRACEPTION
     Dates: start: 20070702, end: 20070820
  2. NUVARING [Suspect]
     Indication: MENORRHAGIA
     Dates: start: 20070702, end: 20070820
  3. NUVARING [Suspect]
     Indication: OFF LABEL USE
     Dates: start: 20070702, end: 20070820
  4. PROMETRIUM [Concomitant]

REACTIONS (1)
  - DEEP VEIN THROMBOSIS [None]
